FAERS Safety Report 5667054-6 (Version None)
Quarter: 2008Q1

REPORT INFORMATION
  Report Type: 
  Country: None (occurrence: None)
  Receive Date: 20080315
  Receipt Date: 20080114
  Transmission Date: 20080703
  Serious: No
  Sender: FDA-Public Use
  Company Number: US-ABBOTT-08P-163-0433453-00

PATIENT
  Sex: Male
  Weight: 97.61 kg

DRUGS (3)
  1. HUMIRA [Suspect]
     Indication: RHEUMATOID ARTHRITIS
     Route: 058
     Dates: start: 20070701
  2. INFLUENZA VACCINE [Concomitant]
     Indication: PROPHYLAXIS
     Route: 050
     Dates: start: 20071101, end: 20071101
  3. PNEUMONIA SHOT [Concomitant]
     Indication: PROPHYLAXIS
     Route: 050
     Dates: start: 20071101, end: 20071101

REACTIONS (4)
  - COUGH [None]
  - DIZZINESS [None]
  - INCREASED UPPER AIRWAY SECRETION [None]
  - SPUTUM DISCOLOURED [None]
